FAERS Safety Report 17825474 (Version 2)
Quarter: 2020Q3

REPORT INFORMATION
  Report Type: Spontaneous
  Country: FR (occurrence: FR)
  Receive Date: 20200526
  Receipt Date: 20200826
  Transmission Date: 20201102
  Serious: Yes (Hospitalization, Other)
  Sender: FDA-Public Use
  Company Number: FR-PFIZER INC-2020205625

PATIENT
  Age: 58 Year
  Sex: Male
  Weight: 60 kg

DRUGS (5)
  1. CEFOTAXIME SODIUM [Concomitant]
     Active Substance: CEFOTAXIME SODIUM
     Dosage: UNK
  2. ZITHROMAX [Suspect]
     Active Substance: AZITHROMYCIN DIHYDRATE
     Indication: CORONAVIRUS INFECTION
     Dosage: 2 DF, 1X/DAY
     Route: 048
     Dates: start: 20200331, end: 20200401
  3. LOVENOX [Concomitant]
     Active Substance: ENOXAPARIN SODIUM
     Dosage: UNK
  4. DOLIPRANE [Suspect]
     Active Substance: ACETAMINOPHEN
     Indication: HYPERTHERMIA
     Dosage: 2000 MG, DAILY
     Route: 048
     Dates: start: 20200329, end: 20200401
  5. PLAQUENIL [HYDROXYCHLOROQUINE PHOSPHATE] [Suspect]
     Active Substance: HYDROXYCHLOROQUINE DIPHOSPHATE
     Indication: CORONAVIRUS INFECTION
     Dosage: 2 DF, 1X/DAY
     Route: 048
     Dates: start: 20200331, end: 20200402

REACTIONS (4)
  - Product use in unapproved indication [Unknown]
  - Hepatocellular injury [Recovering/Resolving]
  - Off label use [Unknown]
  - Electrocardiogram repolarisation abnormality [Recovered/Resolved]

NARRATIVE: CASE EVENT DATE: 20200331
